FAERS Safety Report 16410912 (Version 2)
Quarter: 2019Q3

REPORT INFORMATION
  Report Type: Report from Study
  Country: GB (occurrence: GB)
  Receive Date: 20190610
  Receipt Date: 20190709
  Transmission Date: 20191004
  Serious: Yes (Hospitalization)
  Sender: FDA-Public Use
  Company Number: GB-PFIZER INC-2019216108

PATIENT
  Age: 82 Year
  Sex: Male
  Weight: 76.5 kg

DRUGS (7)
  1. GLASDEGIB [Suspect]
     Active Substance: GLASDEGIB
     Indication: ACUTE MYELOID LEUKAEMIA
     Dosage: UNK, ONCE DAILY CONTINUOS
     Route: 048
     Dates: start: 20190415
  2. DOCUSATE SODIUM. [Concomitant]
     Active Substance: DOCUSATE SODIUM
     Indication: CONSTIPATION
     Dosage: 100 MG, BD
     Route: 048
     Dates: start: 20190518
  3. LEVOMEPROMAZINE [Concomitant]
     Active Substance: LEVOMEPROMAZINE
     Indication: VOMITING
     Dosage: 3.125 MG, AS NEEDED
     Route: 058
     Dates: start: 20190518
  4. ACICLOVIR [Concomitant]
     Active Substance: ACYCLOVIR
     Indication: PROPHYLAXIS
     Dosage: 400 MG, 2X/DAY
     Route: 048
     Dates: start: 20190430
  5. CYCLIZINE [Concomitant]
     Active Substance: CYCLIZINE
     Indication: VOMITING
     Dosage: 50 MG/KG, TDS
     Route: 048
     Dates: start: 20190503
  6. AMIKACIN. [Concomitant]
     Active Substance: AMIKACIN
     Indication: URINARY RETENTION
     Dosage: 1200 MG, STAT
     Route: 042
     Dates: start: 20190518, end: 20190518
  7. AZACITIDINE. [Suspect]
     Active Substance: AZACITIDINE
     Indication: ACUTE MYELOID LEUKAEMIA
     Dosage: 150 MG, REGIMEN: 4+3 (D1 15APR2019, D2 16APR2019, D3 17APR2019, D4 18APR2019, D5 20APR2019, D6 23APR
     Route: 042
     Dates: start: 20190415, end: 20190425

REACTIONS (1)
  - Neutropenic sepsis [Recovered/Resolved]

NARRATIVE: CASE EVENT DATE: 20190518
